FAERS Safety Report 4331886-7 (Version None)
Quarter: 2004Q2

REPORT INFORMATION
  Report Type: 
  Country: None (occurrence: None)
  Receive Date: 20040405
  Receipt Date: 20040218
  Transmission Date: 20050107
  Serious: No
  Sender: FDA-Public Use
  Company Number: US-GLAXOSMITHKLINE-A0498593A

PATIENT
  Sex: Female

DRUGS (1)
  1. FLOVENT [Suspect]
     Indication: ILL-DEFINED DISORDER
     Route: 055

REACTIONS (6)
  - FATIGUE [None]
  - HYPERSENSITIVITY [None]
  - LYMPHADENOPATHY [None]
  - NASAL CONGESTION [None]
  - PHARYNGOLARYNGEAL PAIN [None]
  - PYREXIA [None]
